FAERS Safety Report 15525735 (Version 1)
Quarter: 2018Q4

REPORT INFORMATION
  Report Type: Spontaneous
  Country: JP (occurrence: JP)
  Receive Date: 20181018
  Receipt Date: 20181018
  Transmission Date: 20190205
  Serious: Yes (Hospitalization, Other)
  Sender: FDA-Public Use
  Company Number: JP-MYLANLABS-2018M1077377

PATIENT
  Age: 69 Year
  Sex: Male

DRUGS (12)
  1. OXALIPLATIN. [Suspect]
     Active Substance: OXALIPLATIN
     Indication: COLON CANCER
     Dosage: AS PART OF 12 CYCLES OF MFOLFOX6 AND 3 CYCLES OF FOLFIRI REGIMEN
     Route: 065
  2. DEXAMETHASONE. [Concomitant]
     Active Substance: DEXAMETHASONE
     Indication: PRODUCT USED FOR UNKNOWN INDICATION
     Route: 042
  3. LACTIC ACID. [Concomitant]
     Active Substance: LACTIC ACID
     Indication: PRODUCT USED FOR UNKNOWN INDICATION
     Dosage: RECEIVED JUST BEFORE THE ONSET OF ILD
     Route: 048
  4. FLUOROURACIL. [Suspect]
     Active Substance: FLUOROURACIL
     Indication: COLON CANCER
     Dosage: AS PART OF 12 CYCLES OF MFOLFOX6 AND 3 CYCLES OF FOLFIRI REGIMEN
     Route: 050
  5. BEVACIZUMAB. [Concomitant]
     Active Substance: BEVACIZUMAB
     Indication: COLON CANCER
     Dosage: ALONG WITH 10 CYCLES OF MFOLFOX6 AND 1 CYCLE OF FOLFIRI REGIMEN
     Route: 065
  6. MAGNESIUM OXIDE TAB. 250MG ?MYLAN? [Concomitant]
     Indication: PRODUCT USED FOR UNKNOWN INDICATION
     Dosage: RECEIVED JUST BEFORE THE ONSET OF ILD
     Route: 048
  7. BROTIZOLAM [Concomitant]
     Active Substance: BROTIZOLAM
     Indication: PRODUCT USED FOR UNKNOWN INDICATION
     Dosage: RECEIVED JUST BEFORE THE ONSET OF ILD
     Route: 048
  8. PALONOSETRON. [Concomitant]
     Active Substance: PALONOSETRON HYDROCHLORIDE
     Indication: PRODUCT USED FOR UNKNOWN INDICATION
     Route: 042
  9. IRINOTECAN [Suspect]
     Active Substance: IRINOTECAN
     Indication: COLON CANCER
     Dosage: AS PART OF 3 CYCLES OF FOLFIRI REGIMEN
     Route: 065
  10. FLUOROURACIL. [Suspect]
     Active Substance: FLUOROURACIL
     Indication: COLON CANCER
     Dosage: AS PART OF 12 CYCLES OF MFOLFOX6 AND 3 CYCLES OF FOLFIRI REGIMEN
     Route: 050
  11. CALCIUM FOLINATE [Suspect]
     Active Substance: LEUCOVORIN CALCIUM
     Indication: COLON CANCER
     Dosage: AS PART OF 12 CYCLES OF MFOLFOX6 AND 3 CYCLES OF FOLFIRI REGIMEN
     Route: 065
  12. SCOPOLAMINE BUTYLBROMIDE [Concomitant]
     Active Substance: SCOPOLAMINE
     Indication: PRODUCT USED FOR UNKNOWN INDICATION
     Route: 042

REACTIONS (2)
  - Neuropathy peripheral [Unknown]
  - Interstitial lung disease [Recovered/Resolved]
